FAERS Safety Report 4536661-6 (Version None)
Quarter: 2004Q4

REPORT INFORMATION
  Report Type: 
  Country: None (occurrence: None)
  Receive Date: 20041222
  Receipt Date: 20041222
  Transmission Date: 20050328
  Serious: Yes (Other)
  Sender: FDA-Public Use
  Company Number: None

PATIENT
  Sex: Female
  Weight: 68.9467 kg

DRUGS (9)
  1. CORRECTOL [Suspect]
     Indication: CONSTIPATION
     Dosage: ORAL
     Route: 048
  2. FEEN-A-MINT NO DOSE FORM [Suspect]
     Indication: CONSTIPATION
  3. EX-LAX TABLETS [Suspect]
     Indication: CONSTIPATION
     Dosage: ORAL
     Route: 048
  4. DULCOLAX [Suspect]
     Indication: CONSTIPATION
     Dosage: ORAL
     Route: 048
  5. SENOKOT [Suspect]
     Indication: CONSTIPATION
     Dosage: ORAL
     Route: 048
  6. NATURE'S REMEDY TABLETS [Suspect]
     Indication: CONSTIPATION
     Dosage: ORAL
     Route: 048
  7. PAXIL [Concomitant]
  8. PREMPRO [Concomitant]
  9. PRILOSEC [Concomitant]

REACTIONS (8)
  - ABDOMINAL PAIN LOWER [None]
  - BIOPSY MUCOSA ABNORMAL [None]
  - COLONIC POLYP [None]
  - DIVERTICULUM INTESTINAL [None]
  - DRUG DEPENDENCE [None]
  - GASTROINTESTINAL MUCOSAL DISORDER [None]
  - HAEMORRHOIDS [None]
  - TREATMENT NONCOMPLIANCE [None]
